FAERS Safety Report 17111332 (Version 1)
Quarter: 2019Q4

REPORT INFORMATION
  Report Type: Report from Study
  Country: None (occurrence: US)
  Receive Date: 20191204
  Receipt Date: 20191204
  Transmission Date: 20200122
  Serious: Yes (Death, Hospitalization, Other)
  Sender: FDA-Public Use
  Company Number: US-ABBVIE-19K-163-3177871-00

PATIENT

DRUGS (1)
  1. IMBRUVICA [Suspect]
     Active Substance: IBRUTINIB
     Indication: HAEMATOLOGICAL MALIGNANCY
     Route: 065

REACTIONS (9)
  - Cerebrovascular accident [Fatal]
  - Myocardial infarction [Fatal]
  - Atrial fibrillation [Fatal]
  - Deep vein thrombosis [Fatal]
  - Intracardiac thrombus [Fatal]
  - Transient ischaemic attack [Fatal]
  - Peripheral vascular disorder [Fatal]
  - Retinal vein occlusion [Fatal]
  - Haemorrhage [Fatal]
